FAERS Safety Report 24330253 (Version 1)
Quarter: 2024Q3

REPORT INFORMATION
  Report Type: Spontaneous
  Country: US (occurrence: US)
  Receive Date: 20240918
  Receipt Date: 20240918
  Transmission Date: 20241016
  Serious: No
  Sender: AMGEN
  Company Number: US-AMGEN-USASP2024181884

PATIENT
  Age: 32 Year
  Sex: Female

DRUGS (3)
  1. BEVACIZUMAB [Suspect]
     Active Substance: BEVACIZUMAB
     Indication: Vitreous haemorrhage
     Dosage: 1.25 MILLIGRAM, Q3MO, IN 0.05 ML
     Dates: start: 2022
  2. BEVACIZUMAB [Suspect]
     Active Substance: BEVACIZUMAB
     Indication: Iris neovascularisation
  3. IMMUNE GLOBULIN [Concomitant]
     Indication: Guillain-Barre syndrome
     Dosage: UNK
     Route: 042
     Dates: start: 2022

REACTIONS (3)
  - Blood phosphorus increased [Recovering/Resolving]
  - Drug ineffective for unapproved indication [Unknown]
  - Off label use [Unknown]

NARRATIVE: CASE EVENT DATE: 20220101
